FAERS Safety Report 8976035 (Version 6)
Quarter: 2013Q1

REPORT INFORMATION
  Report Type: Spontaneous
  Country: BR (occurrence: BR)
  Receive Date: 20121220
  Receipt Date: 20130326
  Transmission Date: 20140127
  Serious: Yes (Death, Life-Threatening, Hospitalization, Other)
  Sender: FDA-Public Use
  Company Number: PHHY2012BR116857

PATIENT
  Sex: Male
  Weight: 68 kg

DRUGS (7)
  1. FORASEQ [Suspect]
     Indication: EMPHYSEMA
     Dosage: 12/400 MCG 1 DF (FROM 7 OR 8 YEARS AGO)
  2. BAMIFIX [Concomitant]
     Indication: EMPHYSEMA
     Dosage: 60 MG, BID (FROM 5 YEARS AGO)
  3. METFORMIN [Concomitant]
     Indication: GLUCOSE TOLERANCE IMPAIRED
     Dosage: 2 DF, (FROM  4 OR 5 YEARS AGO)
     Route: 048
  4. OMEPRAZOLE [Concomitant]
     Indication: ABDOMINAL DISCOMFORT
     Dosage: 1 DF, (FROM 1 YEAR AND HALF AGO)
     Route: 048
  5. PHARMATON [Concomitant]
     Indication: HYPOVITAMINOSIS
  6. B COMPLEX [Concomitant]
     Indication: HYPOVITAMINOSIS
  7. VITAFER                            /00023601/ [Concomitant]
     Indication: HYPOVITAMINOSIS

REACTIONS (22)
  - Lung neoplasm malignant [Fatal]
  - Emphysema [Fatal]
  - Diarrhoea [Recovering/Resolving]
  - Dizziness [Recovering/Resolving]
  - Blood pressure abnormal [Recovering/Resolving]
  - Decreased immune responsiveness [Recovering/Resolving]
  - Infection [Recovered/Resolved]
  - Pneumonia [Recovered/Resolved]
  - Metastases to bone [Not Recovered/Not Resolved]
  - Bone pain [Not Recovered/Not Resolved]
  - Neurotoxicity [Recovering/Resolving]
  - Visual acuity reduced [Not Recovered/Not Resolved]
  - Arrhythmia [Recovering/Resolving]
  - Blood thyroid stimulating hormone increased [Recovering/Resolving]
  - Limb discomfort [Not Recovered/Not Resolved]
  - Gait disturbance [Not Recovered/Not Resolved]
  - Asthenia [Not Recovered/Not Resolved]
  - Product physical issue [Unknown]
  - Incorrect dose administered [Unknown]
  - Glucose tolerance impaired [Not Recovered/Not Resolved]
  - Hypertension [Recovering/Resolving]
  - Blood cholesterol increased [Unknown]
